FAERS Safety Report 5584030-2 (Version None)
Quarter: 2008Q1

REPORT INFORMATION
  Report Type: 
  Country: None (occurrence: None)
  Receive Date: 20080108
  Receipt Date: 20071228
  Transmission Date: 20080703
  Serious: Yes (Hospitalization)
  Sender: FDA-Public Use
  Company Number: US-AVENTIS-200721815GDDC

PATIENT
  Age: 79 Year
  Sex: Male
  Weight: 70.76 kg

DRUGS (4)
  1. TAXOTERE [Suspect]
     Indication: PROSTATE CANCER
     Route: 042
     Dates: start: 20071001, end: 20071213
  2. DEXAMETHASONE TAB [Suspect]
     Dosage: DOSE: 24 MG AS TOTAL DOSE THIS COURSE
     Dates: end: 20071214
  3. PREDNISONE [Suspect]
     Indication: PROSTATE CANCER
     Dosage: DOSE: 130 AS TOTAL DOSE THIS COURSE
     Dates: start: 20071001, end: 20071226
  4. CODE UNBROKEN [Suspect]
     Indication: PROSTATE CANCER
     Dosage: DOSE: 10 MG AS TOTAL DOSE THIS COURSE
     Route: 048
     Dates: start: 20071001, end: 20071213

REACTIONS (5)
  - ANAL HAEMORRHAGE [None]
  - CONSTIPATION [None]
  - DYSPNOEA [None]
  - FATIGUE [None]
  - RENAL FAILURE [None]
